FAERS Safety Report 25073352 (Version 1)
Quarter: 2025Q1

REPORT INFORMATION
  Report Type: Spontaneous
  Country: US (occurrence: US)
  Receive Date: 20250313
  Receipt Date: 20250313
  Transmission Date: 20250409
  Serious: Yes (Death, Other)
  Sender: RANBAXY
  Company Number: US-SUN PHARMACEUTICAL INDUSTRIES LTD-2025R1-498644

PATIENT
  Age: 53 Year
  Sex: Male

DRUGS (5)
  1. METHYLPREDNISOLONE [Suspect]
     Active Substance: METHYLPREDNISOLONE
     Indication: Immunosuppression
     Route: 065
  2. TACROLIMUS [Suspect]
     Active Substance: TACROLIMUS
     Indication: Immunosuppression
     Dosage: 11 MILLIGRAM, BID
     Route: 065
  3. MYCOPHENOLATE MOFETIL [Suspect]
     Active Substance: MYCOPHENOLATE MOFETIL
     Indication: Immunosuppression
     Dosage: 1000 MILLIGRAM, BID
     Route: 065
  4. SULFAMETHOXAZOLE\TRIMETHOPRIM [Suspect]
     Active Substance: SULFAMETHOXAZOLE\TRIMETHOPRIM
     Indication: Prophylaxis
     Route: 065
  5. VALGANCICLOVIR [Suspect]
     Active Substance: VALGANCICLOVIR
     Indication: Prophylaxis
     Route: 065

REACTIONS (18)
  - Bradycardia [Fatal]
  - Cardiac arrest [Fatal]
  - Monkeypox [Fatal]
  - Bacteraemia [Unknown]
  - Polyomavirus viraemia [Unknown]
  - Delayed graft function [Unknown]
  - Urinary tract infection [Unknown]
  - Enterobacter infection [Unknown]
  - Encephalopathy [Not Recovered/Not Resolved]
  - Respiratory failure [Unknown]
  - Shock [Unknown]
  - Multiple organ dysfunction syndrome [Unknown]
  - Lactic acidosis [Unknown]
  - Coagulopathy [Unknown]
  - Acute hepatic failure [Unknown]
  - Hyperbilirubinaemia [Unknown]
  - Transplant rejection [Unknown]
  - Transplant rejection [Unknown]
